FAERS Safety Report 25019438 (Version 1)
Quarter: 2025Q1

REPORT INFORMATION
  Report Type: Spontaneous
  Country: US (occurrence: None)
  Receive Date: 20250227
  Receipt Date: 20250227
  Transmission Date: 20250408
  Serious: No
  Sender: FDA-CTU
  Company Number: None

PATIENT

DRUGS (2)
  1. HUMIRA [Suspect]
     Active Substance: ADALIMUMAB
  2. DUPIXENT [Concomitant]
     Active Substance: DUPILUMAB

REACTIONS (6)
  - Brain fog [None]
  - Headache [None]
  - Vision blurred [None]
  - Fatigue [None]
  - Malnutrition [None]
  - Quality of life decreased [None]
